FAERS Safety Report 6604473-5 (Version None)
Quarter: 2010Q1

REPORT INFORMATION
  Report Type: 
  Country: None (occurrence: None)
  Receive Date: 20100226
  Receipt Date: 20091023
  Transmission Date: 20100710
  Serious: No
  Sender: FDA-Public Use
  Company Number: A0813189A

PATIENT
  Age: 46 Year
  Sex: Male

DRUGS (5)
  1. LAMICTAL CD [Suspect]
     Dosage: 100MG PER DAY
     Route: 048
     Dates: start: 20090701
  2. AZOR [Concomitant]
  3. ACTOS [Concomitant]
  4. VYVANSE [Concomitant]
  5. MULTI-VITAMIN [Concomitant]

REACTIONS (2)
  - ACNE [None]
  - MILIA [None]
